APPROVED DRUG PRODUCT: DOXYLAMINE SUCCINATE
Active Ingredient: DOXYLAMINE SUCCINATE
Strength: 25MG
Dosage Form/Route: TABLET;ORAL
Application: A088900 | Product #002
Applicant: COPLEY PHARMACEUTICAL INC
Approved: Feb 12, 1988 | RLD: No | RS: No | Type: DISCN